FAERS Safety Report 23945178 (Version 1)
Quarter: 2024Q2

REPORT INFORMATION
  Report Type: Spontaneous
  Country: IT (occurrence: IT)
  Receive Date: 20240606
  Receipt Date: 20240606
  Transmission Date: 20240716
  Serious: Yes (Other)
  Sender: FDA-Public Use
  Company Number: IT-AUROBINDO-AUR-APL-2024-026598

PATIENT
  Age: 23 Year
  Sex: Female

DRUGS (2)
  1. CLOZAPINE [Interacting]
     Active Substance: CLOZAPINE
     Indication: Schizophrenia
     Dosage: 400 MILLIGRAM, ONCE A DAY
     Route: 048
  2. BREXPIPRAZOLE [Interacting]
     Active Substance: BREXPIPRAZOLE
     Indication: Schizophrenia
     Dosage: 4 MILLIGRAM, ONCE A DAY
     Route: 065

REACTIONS (3)
  - Schizophrenia [Unknown]
  - Drug level decreased [Recovered/Resolved]
  - Drug interaction [Unknown]
